FAERS Safety Report 9812034 (Version 2)
Quarter: 2016Q4

REPORT INFORMATION
  Report Type: Spontaneous
  Country: US (occurrence: US)
  Receive Date: 20140110
  Receipt Date: 20161219
  Transmission Date: 20170207
  Serious: Yes (Hospitalization)
  Sender: FDA-Public Use
  Company Number: US-SA-2013SA101236

PATIENT
  Age: 69 Year
  Sex: Female

DRUGS (33)
  1. ACCUPRIL [Concomitant]
     Active Substance: QUINAPRIL HYDROCHLORIDE
  2. CLARINEX [Concomitant]
     Active Substance: DESLORATADINE
  3. LYRICA [Concomitant]
     Active Substance: PREGABALIN
     Dosage: STRENGTH: 150 MG
  4. MAGNESIUM OXIDE. [Concomitant]
     Active Substance: MAGNESIUM OXIDE
     Dosage: STERNGTH: 400 MG
  5. VITAMIN B12 [Concomitant]
     Active Substance: CYANOCOBALAMIN
     Dosage: STRENGTH: 1000 MG FREQUENCY: EVERY MORNING
  6. TRADJENTA [Concomitant]
     Active Substance: LINAGLIPTIN
     Dosage: 5 MG
     Route: 048
  7. VITAMIN E [Concomitant]
     Active Substance: .ALPHA.-TOCOPHEROL
     Dosage: 750
  8. METHOCARBAMOL. [Concomitant]
     Active Substance: METHOCARBAMOL
     Dosage: 500 MG
  9. GLUCOPHAGE [Concomitant]
     Active Substance: METFORMIN HYDROCHLORIDE
  10. NORVASC [Concomitant]
     Active Substance: AMLODIPINE BESYLATE
  11. GLIPIZIDE. [Concomitant]
     Active Substance: GLIPIZIDE
     Dosage: STRENGTH: 5 MG
  12. HYDROCODONE [Concomitant]
     Active Substance: HYDROCODONE
  13. ATENOLOL. [Concomitant]
     Active Substance: ATENOLOL
  14. PLAVIX [Suspect]
     Active Substance: CLOPIDOGREL BISULFATE
     Indication: THROMBOSIS PROPHYLAXIS
     Route: 065
     Dates: start: 200501
  15. METOPROLOL. [Concomitant]
     Active Substance: METOPROLOL
     Dosage: STRENGTH: 25 MG
  16. TEMAZEPAM. [Concomitant]
     Active Substance: TEMAZEPAM
     Dosage: 30 MG
  17. TYLENOL [Concomitant]
     Active Substance: ACETAMINOPHEN
  18. TRADJENTA [Concomitant]
     Active Substance: LINAGLIPTIN
     Dosage: STRENGTH: 5 MG ; FERQUENCY: IN MORNING
  19. ACETAMINOPHEN W/OXYCODONE [Concomitant]
     Active Substance: ACETAMINOPHEN\OXYCODONE HYDROCHLORIDE
     Route: 048
  20. ALLEGRA [Concomitant]
     Active Substance: FEXOFENADINE HYDROCHLORIDE
  21. TRAMADOL. [Concomitant]
     Active Substance: TRAMADOL
  22. CARBIDOPA/LEVODOPA [Concomitant]
     Dosage: STRENGTH: 25 MG
  23. LOSARTAN. [Concomitant]
     Active Substance: LOSARTAN
     Dosage: STRENGTH: 100 MG; FREQUENCY: EVERY MORNING
  24. METFORMIN [Concomitant]
     Active Substance: METFORMIN HYDROCHLORIDE
     Dosage: STRENGTH: 500 MG
  25. ISOSORBIDE. [Concomitant]
     Active Substance: ISOSORBIDE
     Dosage: STRENGTH: 30 MG ; FREQUENCY: EVERY MORNING
  26. LIPITOR [Concomitant]
     Active Substance: ATORVASTATIN CALCIUM
  27. ALBUTEROL. [Concomitant]
     Active Substance: ALBUTEROL
     Dosage: INHALER
  28. ASPIRIN. [Concomitant]
     Active Substance: ASPIRIN
  29. LEVETIRACETAM. [Concomitant]
     Active Substance: LEVETIRACETAM
     Dosage: STRENGTH: 500 MG
  30. OXYCONTIN [Concomitant]
     Active Substance: OXYCODONE HYDROCHLORIDE
     Dosage: 60 MG
  31. PRIMIDONE. [Concomitant]
     Active Substance: PRIMIDONE
     Dosage: 50 MG
     Route: 048
  32. ATORVASTATIN [Concomitant]
     Active Substance: ATORVASTATIN
     Dosage: STRENGTH: 40 MG ; FERQUENCY: AT NIGHT
  33. GLUCOTROL [Concomitant]
     Active Substance: GLIPIZIDE

REACTIONS (2)
  - Gastrointestinal haemorrhage [Unknown]
  - Ulcer haemorrhage [Unknown]

NARRATIVE: CASE EVENT DATE: 20111001
